FAERS Safety Report 22641708 (Version 1)
Quarter: 2023Q2

REPORT INFORMATION
  Report Type: Report from Study
  Country: IT (occurrence: IT)
  Receive Date: 20230626
  Receipt Date: 20230626
  Transmission Date: 20230722
  Serious: Yes (Hospitalization)
  Sender: FDA-Public Use
  Company Number: None

PATIENT
  Age: 13 Year
  Sex: Male
  Weight: 41 kg

DRUGS (3)
  1. DOXORUBICIN [Suspect]
     Active Substance: DOXORUBICIN
     Indication: Ewing^s sarcoma
     Dosage: 50 MG/IV DAYS 1,2   , DOXORUBICINA  ,
     Route: 042
     Dates: start: 20211129, end: 20211130
  2. VINCRISTINE [Suspect]
     Active Substance: VINCRISTINE
     Indication: Ewing^s sarcoma
     Dosage: 2 MILLIGRAM DAILY; 2 MG/IV DAY 1 , VINCRISTINA
     Route: 042
     Dates: start: 20211129, end: 20211129
  3. CYCLOPHOSPHAMIDE [Suspect]
     Active Substance: CYCLOPHOSPHAMIDE
     Indication: Ewing^s sarcoma
     Dosage: 1600 MILLIGRAM DAILY; 1600 MG/IV DAY 1  , CYCLOPHOSPHAMIDE
     Route: 042
     Dates: start: 20211129, end: 20211129

REACTIONS (1)
  - Mucosal inflammation [Recovered/Resolved]

NARRATIVE: CASE EVENT DATE: 20211210
